FAERS Safety Report 25375287 (Version 1)
Quarter: 2025Q2

REPORT INFORMATION
  Report Type: Spontaneous
  Country: US (occurrence: US)
  Receive Date: 20250529
  Receipt Date: 20250529
  Transmission Date: 20250717
  Serious: No
  Sender: CARDINAL HEALTH
  Company Number: US-Cardinal Health 414-NPHS-AE-25-6

PATIENT
  Age: 37 Year
  Sex: Female

DRUGS (1)
  1. SODIUM IODIDE I-123 [Suspect]
     Active Substance: SODIUM IODIDE I-123
     Indication: Scan thyroid gland
     Route: 048
     Dates: start: 20250416, end: 20250416

REACTIONS (2)
  - Flushing [Recovered/Resolved]
  - Product preparation error [Recovered/Resolved]

NARRATIVE: CASE EVENT DATE: 20250416
